FAERS Safety Report 8011654-5 (Version None)
Quarter: 2011Q4

REPORT INFORMATION
  Report Type: 
  Country: None (occurrence: None)
  Receive Date: 20111228
  Receipt Date: 20111222
  Transmission Date: 20120403
  Serious: Yes (Other)
  Sender: FDA-Public Use
  Company Number: US-ELI_LILLY_AND_COMPANY-US201112006765

PATIENT
  Sex: Female

DRUGS (2)
  1. HUMULIN 70/30 [Suspect]
     Indication: TYPE 2 DIABETES MELLITUS
     Dosage: 70 U, EACH MORNING
  2. HUMULIN 70/30 [Suspect]
     Dosage: 55 U, EACH EVENING

REACTIONS (4)
  - CATARACT [None]
  - EYE DISORDER [None]
  - VISUAL ACUITY REDUCED [None]
  - RENAL FAILURE [None]
